FAERS Safety Report 8312408-2 (Version None)
Quarter: 2012Q2

REPORT INFORMATION
  Report Type: 
  Country: None (occurrence: None)
  Receive Date: 20120425
  Receipt Date: 20120109
  Transmission Date: 20120825
  Serious: Yes (Hospitalization, Other)
  Sender: FDA-Public Use
  Company Number: PHHY2012FR034760

PATIENT
  Age: 31 Year
  Sex: Female

DRUGS (1)
  1. LEVONORGESTREL [Suspect]
     Dosage: 1 DF/DAY
     Route: 048
     Dates: start: 20101220, end: 20110112

REACTIONS (3)
  - HAEMORRHOIDS [None]
  - PAIN [None]
  - ANAL FISSURE [None]
